FAERS Safety Report 6424822-0 (Version None)
Quarter: 2009Q4

REPORT INFORMATION
  Report Type: 
  Country: None (occurrence: None)
  Receive Date: 20091103
  Receipt Date: 20091027
  Transmission Date: 20100525
  Serious: Yes (Other)
  Sender: FDA-Public Use
  Company Number: PHHY2009GB47349

PATIENT
  Age: 44 Year
  Sex: Male

DRUGS (1)
  1. TERBINAFINE HCL [Suspect]
     Indication: ONYCHOMYCOSIS
     Dosage: 250 MG PO
     Route: 048
     Dates: start: 20080115, end: 20090827

REACTIONS (2)
  - PEYRONIE'S DISEASE [None]
  - TENOSYNOVITIS STENOSANS [None]
